FAERS Safety Report 16265830 (Version 6)
Quarter: 2024Q1

REPORT INFORMATION
  Report Type: Spontaneous
  Country: FR (occurrence: FR)
  Receive Date: 20190502
  Receipt Date: 20240215
  Transmission Date: 20240410
  Serious: Yes (Death, Hospitalization, Other)
  Sender: FDA-Public Use
  Company Number: FR-PFIZER INC-2018487566

PATIENT
  Age: 58 Year
  Sex: Male
  Weight: 84 kg

DRUGS (10)
  1. OXALIPLATIN [Suspect]
     Active Substance: OXALIPLATIN
     Indication: Chemotherapy
     Dosage: 1 (UNK UNK), CYCLE
     Route: 065
     Dates: start: 20171031
  2. FLUOROURACIL [Suspect]
     Active Substance: FLUOROURACIL
     Indication: Chemotherapy
     Dosage: 1 (UNK UNK, CYCLIC)
     Route: 065
     Dates: start: 20171031
  3. LEUCOVORIN CALCIUM [Suspect]
     Active Substance: LEUCOVORIN CALCIUM
     Indication: Linitis plastica
     Dosage: 1 (UNK UNK, CYCLIC)
     Route: 065
  4. LEUCOVORIN [Suspect]
     Active Substance: LEUCOVORIN\LEUCOVORIN CALCIUM
     Indication: Linitis plastica
     Dosage: 1 UNK, CYCLE
     Route: 065
     Dates: start: 20171031
  5. LEUCOVORIN [Suspect]
     Active Substance: LEUCOVORIN\LEUCOVORIN CALCIUM
     Indication: Chemotherapy
  6. INFLIXIMAB [Suspect]
     Active Substance: INFLIXIMAB
     Indication: Colitis ulcerative
     Dosage: UNK
     Route: 065
     Dates: start: 201012
  7. INFLIXIMAB [Suspect]
     Active Substance: INFLIXIMAB
     Dosage: UNK
     Route: 065
     Dates: start: 201510, end: 201701
  8. INFLIXIMAB [Suspect]
     Active Substance: INFLIXIMAB
     Dosage: UNK
     Route: 065
     Dates: start: 201709
  9. MERCAPTOPURINE [Suspect]
     Active Substance: MERCAPTOPURINE
     Indication: Colitis ulcerative
     Dosage: UNK
     Route: 065
     Dates: start: 200908
  10. MERCAPTOPURINE [Suspect]
     Active Substance: MERCAPTOPURINE
     Dosage: UNK
     Route: 065
     Dates: start: 201012

REACTIONS (19)
  - Renal failure [Fatal]
  - Febrile bone marrow aplasia [Fatal]
  - Retroperitoneal lymphadenopathy [Fatal]
  - Septic shock [Fatal]
  - Febrile neutropenia [Fatal]
  - Ureteric obstruction [Unknown]
  - Adenocarcinoma of colon [Unknown]
  - Rectal stenosis [Unknown]
  - Pyrexia [Unknown]
  - Metastases to rectum [Unknown]
  - Diarrhoea haemorrhagic [Not Recovered/Not Resolved]
  - Linitis plastica [Unknown]
  - General physical health deterioration [Unknown]
  - Drug ineffective [Unknown]
  - Pulmonary embolism [Unknown]
  - Malignant pleural effusion [Unknown]
  - Thrombocytopenia [Unknown]
  - Enterococcal infection [Unknown]
  - Acinetobacter infection [Unknown]

NARRATIVE: CASE EVENT DATE: 20170101
